FAERS Safety Report 9614580 (Version 1)
Quarter: 2013Q4

REPORT INFORMATION
  Report Type: Spontaneous
  Country: RU (occurrence: RU)
  Receive Date: 20131011
  Receipt Date: 20131011
  Transmission Date: 20140711
  Serious: Yes (Other)
  Sender: FDA-Public Use
  Company Number: PHHY2013RU113598

PATIENT
  Age: 57 Year
  Sex: Male

DRUGS (3)
  1. TASIGNA [Suspect]
     Dosage: 600 MG, UNK
     Route: 048
     Dates: start: 20130801
  2. WARFARIN [Concomitant]
     Dosage: UNK UKN, UNK
     Route: 048
     Dates: start: 20060415, end: 20061015
  3. THROMBO ASS [Concomitant]
     Indication: PULMONARY EMBOLISM
     Dosage: UNK UKN, UNK
     Route: 048
     Dates: start: 20061015

REACTIONS (1)
  - Deep vein thrombosis [Recovering/Resolving]
